FAERS Safety Report 5884093-0 (Version None)
Quarter: 2008Q3

REPORT INFORMATION
  Report Type: 
  Country: None (occurrence: None)
  Receive Date: 20080915
  Receipt Date: 20080910
  Transmission Date: 20090109
  Serious: Yes (Other)
  Sender: FDA-Public Use
  Company Number: GB-BRISTOL-MYERS SQUIBB COMPANY-14286249

PATIENT
  Age: 80 Year
  Sex: Male
  Weight: 76 kg

DRUGS (6)
  1. HYDREA [Suspect]
     Indication: THROMBOCYTHAEMIA
     Dates: start: 20000926
  2. SIMVASTATIN [Concomitant]
     Indication: MYOCARDIAL INFARCTION
     Route: 048
     Dates: start: 19980629
  3. CLOPIDOGREL BISULFATE [Concomitant]
     Indication: THROMBOCYTHAEMIA
     Route: 048
     Dates: start: 19980629
  4. CLOPIDOGREL BISULFATE [Concomitant]
     Indication: MYOCARDIAL INFARCTION
     Route: 048
     Dates: start: 19980629
  5. ALLOPURINOL [Concomitant]
     Indication: THROMBOCYTHAEMIA
     Route: 048
     Dates: start: 20000907
  6. ALLOPURINOL [Concomitant]
     Indication: GOUT
     Route: 048
     Dates: start: 20000907

REACTIONS (3)
  - ACTINIC KERATOSIS [None]
  - BASAL CELL CARCINOMA [None]
  - SQUAMOUS CELL CARCINOMA [None]
